FAERS Safety Report 9804296 (Version 2)
Quarter: 2014Q1

REPORT INFORMATION
  Report Type: Spontaneous
  Country: US (occurrence: US)
  Receive Date: 20140108
  Receipt Date: 20140108
  Transmission Date: 20141002
  Serious: Yes (Disabling, Other)
  Sender: FDA-Public Use
  Company Number: US-009507513-1104USA03000

PATIENT
  Sex: Male
  Weight: 83.46 kg

DRUGS (4)
  1. PROPECIA [Suspect]
     Indication: ANDROGENETIC ALOPECIA
     Dosage: 1 MG, QD
     Route: 048
     Dates: start: 20090702, end: 2010
  2. PROPECIA [Suspect]
     Route: 048
  3. PROSCAR [Suspect]
     Indication: ALOPECIA
     Dosage: 1.25 MG, QD
     Route: 048
     Dates: start: 20090702, end: 201004
  4. PROSCAR [Suspect]
     Dosage: 1.25 MG, QD
     Route: 048
     Dates: start: 20100728

REACTIONS (10)
  - Orgasmic sensation decreased [Unknown]
  - Emotional distress [Unknown]
  - Anxiety [Unknown]
  - Adenoma benign [Unknown]
  - Deafness neurosensory [Unknown]
  - Erectile dysfunction [Unknown]
  - Intentional drug misuse [Recovered/Resolved]
  - Wrong technique in drug usage process [Recovered/Resolved]
  - Tinnitus [Unknown]
  - Seroma [Unknown]
